FAERS Safety Report 19349716 (Version 1)
Quarter: 2021Q2

REPORT INFORMATION
  Report Type: Other
  Country: CA (occurrence: CA)
  Receive Date: 20210531
  Receipt Date: 20210531
  Transmission Date: 20210717
  Serious: Yes (Death, Other)
  Sender: FDA-Public Use
  Company Number: CA-CELLTRION INC.-2021CA007079

PATIENT

DRUGS (24)
  1. LEFLUNOMIDE. [Suspect]
     Active Substance: LEFLUNOMIDE
     Indication: PRODUCT USED FOR UNKNOWN INDICATION
     Route: 065
  2. METHOTREXATE. [Suspect]
     Active Substance: METHOTREXATE
     Indication: PRODUCT USED FOR UNKNOWN INDICATION
     Route: 065
  3. ACETAMINOPHEN. [Concomitant]
     Active Substance: ACETAMINOPHEN
     Dosage: 650 MG
     Route: 048
  4. ALTACE [Concomitant]
     Active Substance: RAMIPRIL
  5. METHYLPREDNISOLONE. [Concomitant]
     Active Substance: METHYLPREDNISOLONE
     Dosage: 100 MG
     Route: 042
  6. ACETAMINOPHEN/CAFFEINE/DIHYDROCODEINE BITARTRATE [Concomitant]
  7. ASA [Concomitant]
     Active Substance: ASPIRIN
  8. NEXIUM [Concomitant]
     Active Substance: ESOMEPRAZOLE MAGNESIUM
  9. ACETAMINOPHEN. [Concomitant]
     Active Substance: ACETAMINOPHEN
     Dosage: 1000 MG
     Route: 048
  10. DIPHENHYDRAMINE. [Concomitant]
     Active Substance: DIPHENHYDRAMINE
     Dosage: 50 MG
     Route: 048
  11. RITUXIMAB (UNKNOWN) [Suspect]
     Active Substance: RITUXIMAB
     Indication: RHEUMATOID ARTHRITIS
     Dosage: UNK
     Route: 042
  12. ATIVAN [Concomitant]
     Active Substance: LORAZEPAM
  13. RISPERIDONE. [Concomitant]
     Active Substance: RISPERIDONE
  14. ACETAMINOPHEN. [Concomitant]
     Active Substance: ACETAMINOPHEN
     Dosage: 1000 MG
     Route: 048
  15. ATORVASTATIN [Concomitant]
     Active Substance: ATORVASTATIN
  16. SOLIFENACIN [Concomitant]
     Active Substance: SOLIFENACIN
  17. LEFLUNOMIDE. [Suspect]
     Active Substance: LEFLUNOMIDE
     Indication: PRODUCT USED FOR UNKNOWN INDICATION
     Route: 065
  18. REMICADE [Suspect]
     Active Substance: INFLIXIMAB
     Indication: PRODUCT USED FOR UNKNOWN INDICATION
     Route: 065
  19. LIPITOR [Concomitant]
     Active Substance: ATORVASTATIN CALCIUM
  20. RAMIPRIL. [Concomitant]
     Active Substance: RAMIPRIL
  21. METOPROLOL. [Concomitant]
     Active Substance: METOPROLOL
  22. OXYCODONE [Concomitant]
     Active Substance: OXYCODONE
  23. RITUXIMAB. [Suspect]
     Active Substance: RITUXIMAB
     Indication: RHEUMATOID ARTHRITIS
     Dosage: 1000 MILLIGRAM
     Route: 042
  24. CITALOPRAM [Concomitant]
     Active Substance: CITALOPRAM HYDROBROMIDE

REACTIONS (17)
  - Diverticulum [Fatal]
  - Pulmonary oedema [Fatal]
  - Weight increased [Fatal]
  - Oxygen saturation decreased [Fatal]
  - Prostatic disorder [Fatal]
  - Influenza [Fatal]
  - Gastrooesophageal reflux disease [Fatal]
  - Pneumonia [Fatal]
  - Prostatomegaly [Fatal]
  - Lung disorder [Fatal]
  - Malaise [Fatal]
  - Diarrhoea [Fatal]
  - Rheumatoid arthritis [Fatal]
  - Cough [Fatal]
  - Death [Fatal]
  - Rales [Fatal]
  - Wheezing [Fatal]
